FAERS Safety Report 4327789-4 (Version None)
Quarter: 2004Q1

REPORT INFORMATION
  Report Type: 
  Country: None (occurrence: None)
  Receive Date: 20040325
  Receipt Date: 20040315
  Transmission Date: 20041129
  Serious: Yes (Hospitalization)
  Sender: FDA-Public Use
  Company Number: CA-JNJFOC-20031006223

PATIENT
  Age: 55 Year
  Sex: Female
  Weight: 60.9 kg

DRUGS (15)
  1. REMICADE [Suspect]
     Indication: RHEUMATOID ARTHRITIS
     Dosage: 200 MG, 1 IN 1 DAY, INTRAVENOUS
     Route: 042
     Dates: start: 20030821
  2. REMICADE [Suspect]
     Indication: RHEUMATOID ARTHRITIS
     Dosage: 200 MG, 1 IN 1 DAY, INTRAVENOUS
     Route: 042
     Dates: start: 20030904
  3. REMICADE [Suspect]
     Indication: RHEUMATOID ARTHRITIS
     Dosage: 200 MG, 1 IN 1 DAY, INTRAVENOUS
     Route: 042
     Dates: start: 20031022
  4. TEQUIN [Suspect]
  5. PREDNISONE [Concomitant]
  6. LASIX [Concomitant]
  7. EXTRA STRENGTH TYLENOL [Concomitant]
  8. LEVOTHYROXINE SODIUM [Concomitant]
  9. ARAVA [Concomitant]
  10. ARTHROTEC [Concomitant]
  11. CALCIUM CARBONATE (CALCIUM CARBONATE) [Concomitant]
  12. VITAMIN B12 [Concomitant]
  13. SEREVENT [Concomitant]
  14. FLOVENT [Concomitant]
  15. COMBIVENT [Concomitant]

REACTIONS (9)
  - CHRONIC OBSTRUCTIVE AIRWAYS DISEASE EXACERBATED [None]
  - COLD SWEAT [None]
  - HYPERTENSION [None]
  - HYPOXIA [None]
  - NAUSEA [None]
  - PALLOR [None]
  - PULMONARY OEDEMA [None]
  - PYREXIA [None]
  - SCAR [None]
